FAERS Safety Report 5384508-0 (Version None)
Quarter: 2007Q3

REPORT INFORMATION
  Report Type: 
  Country: None (occurrence: None)
  Receive Date: 20070711
  Receipt Date: 20061004
  Transmission Date: 20080115
  Serious: No
  Sender: FDA-Public Use
  Company Number: US-AMGEN-US195812

PATIENT
  Sex: Female

DRUGS (3)
  1. KINERET [Suspect]
     Indication: DRUG USE FOR UNKNOWN INDICATION
     Route: 058
     Dates: start: 20060921
  2. PREDNISONE [Concomitant]
     Route: 065
  3. COLCHICINE [Concomitant]
     Route: 065

REACTIONS (2)
  - INJECTION SITE REACTION [None]
  - PAIN IN EXTREMITY [None]
